APPROVED DRUG PRODUCT: BUDESONIDE
Active Ingredient: BUDESONIDE
Strength: 3MG
Dosage Form/Route: CAPSULE, DELAYED RELEASE;ORAL
Application: A090379 | Product #001
Applicant: BARR LABORATORIES INC SUB TEVA PHARMACEUTICALS USA
Approved: Apr 2, 2014 | RLD: No | RS: No | Type: DISCN